FAERS Safety Report 15831035 (Version 2)
Quarter: 2019Q3

REPORT INFORMATION
  Report Type: Spontaneous
  Country: GB (occurrence: GB)
  Receive Date: 20190116
  Receipt Date: 20190818
  Transmission Date: 20191004
  Serious: Yes (Congenital Anomaly)
  Sender: FDA-Public Use
  Company Number: GB-TEVA-2019-GB-998816

PATIENT

DRUGS (1)
  1. METHOTREXATE. [Suspect]
     Active Substance: METHOTREXATE
     Route: 064
     Dates: start: 20160327, end: 20160929

REACTIONS (2)
  - Combined immunodeficiency [Recovered/Resolved]
  - Foetal exposure during pregnancy [Unknown]
